FAERS Safety Report 6509056-3 (Version None)
Quarter: 2009Q4

REPORT INFORMATION
  Report Type: 
  Country: None (occurrence: None)
  Receive Date: 20091218
  Receipt Date: 20091218
  Transmission Date: 20100525
  Serious: Yes (Life-Threatening, Hospitalization)
  Sender: FDA-Public Use
  Company Number: None

PATIENT
  Age: 76 Year
  Sex: Male
  Weight: 96.66 kg

DRUGS (1)
  1. PIPERACILLIN AND TAZOBACTAM [Suspect]
     Indication: BACTERAEMIA
     Dosage: 2.25 GM TID IV
     Route: 042
     Dates: start: 20090619, end: 20090619

REACTIONS (1)
  - ANGIOEDEMA [None]
